FAERS Safety Report 19675307 (Version 1)
Quarter: 2021Q3

REPORT INFORMATION
  Report Type: Spontaneous
  Country: NO (occurrence: NO)
  Receive Date: 20210809
  Receipt Date: 20210809
  Transmission Date: 20211014
  Serious: Yes (Hospitalization)
  Sender: FDA-Public Use
  Company Number: NO-ROCHE-2884940

PATIENT
  Age: 43 Year
  Sex: Male

DRUGS (3)
  1. DYMISTA [Suspect]
     Active Substance: AZELASTINE HYDROCHLORIDE\FLUTICASONE PROPIONATE
     Indication: HYPERSENSITIVITY
     Dosage: 1 DF,QD
     Route: 045
     Dates: start: 20210201, end: 20210622
  2. XOLAIR [Suspect]
     Active Substance: OMALIZUMAB
     Indication: URTICARIA CHRONIC
     Dosage: 150 MG,6 WEEKS
     Route: 058
     Dates: start: 20200601, end: 20210401
  3. AERIUS (DESLORATADINE) [Suspect]
     Active Substance: DESLORATADINE
     Indication: URTICARIA CHRONIC
     Dosage: 5 MG(2?4 TABLETS DAILY)
     Route: 048
     Dates: start: 20200401, end: 20210522

REACTIONS (9)
  - Bell^s palsy [Unknown]
  - Dizziness [Not Recovered/Not Resolved]
  - Muscle contractions involuntary [Unknown]
  - Presyncope [Unknown]
  - Headache [Recovered/Resolved]
  - Eye irritation [Unknown]
  - Vision blurred [Unknown]
  - Malaise [Recovered/Resolved]
  - Tinnitus [Not Recovered/Not Resolved]

NARRATIVE: CASE EVENT DATE: 20210521
